FAERS Safety Report 4556173-3 (Version None)
Quarter: 2005Q1

REPORT INFORMATION
  Report Type: 
  Country: None (occurrence: None)
  Receive Date: 20050103
  Receipt Date: 20041022
  Transmission Date: 20050727
  Serious: Yes (Hospitalization)
  Sender: FDA-Public Use
  Company Number: 2004UW21199

PATIENT
  Age: 74 Year
  Sex: Male
  Weight: 75.2971 kg

DRUGS (7)
  1. CRESTOR [Suspect]
     Indication: BLOOD CHOLESTEROL INCREASED
     Dosage: 20 MG DAILY PO
     Route: 048
     Dates: start: 20040524, end: 20041004
  2. CRESTOR [Suspect]
     Indication: CORONARY ARTERY DISEASE
     Dosage: 20 MG DAILY PO
     Route: 048
     Dates: start: 20040524, end: 20041004
  3. SYNTHROID [Concomitant]
  4. SPIRIVA [Concomitant]
  5. ATROPINE ^ADRIAN^ [Concomitant]
  6. ASPIRIN [Concomitant]
  7. QUININE SULFATE [Concomitant]

REACTIONS (1)
  - PANCREATITIS [None]
